FAERS Safety Report 8892018 (Version 2)
Quarter: 2012Q4

REPORT INFORMATION
  Report Type: 
  Country: US (occurrence: US)
  Receive Date: 20121108
  Receipt Date: 20121116
  Transmission Date: 20130627
  Serious: Yes (Other)
  Sender: FDA-Public Use
  Company Number: US-JNJFOC-20121017578

PATIENT
  Sex: Female
  Weight: 65.77 kg

DRUGS (13)
  1. REMICADE [Suspect]
     Indication: ANKYLOSING SPONDYLITIS
     Route: 042
     Dates: start: 2010, end: 2010
  2. METHOTREXATE [Suspect]
     Indication: ANKYLOSING SPONDYLITIS
     Route: 048
     Dates: start: 2010, end: 2010
  3. TIZANIDINE [Concomitant]
     Indication: SLEEP DISORDER
     Route: 048
     Dates: start: 2007
  4. IBUPROFEN [Concomitant]
     Indication: PAIN
     Route: 048
     Dates: start: 2007
  5. HYDROCORTISONE [Concomitant]
     Indication: ADRENAL INSUFFICIENCY
     Route: 048
     Dates: start: 2010, end: 2010
  6. VALIUM [Concomitant]
     Indication: FIBROMYALGIA
     Route: 048
     Dates: start: 2007
  7. VALIUM [Concomitant]
     Indication: MUSCLE SPASMS
     Route: 048
     Dates: start: 2007
  8. VALIUM [Concomitant]
     Indication: ANXIETY
     Route: 048
     Dates: start: 2007
  9. SEROQUEL [Concomitant]
     Indication: SLEEP DISORDER
     Route: 048
     Dates: start: 2007
  10. PROZAC [Concomitant]
     Indication: ANTIDEPRESSANT THERAPY
     Route: 048
     Dates: start: 2007
  11. PROZAC [Concomitant]
     Indication: SLEEP DISORDER
     Route: 048
     Dates: start: 2007
  12. HYDROCODONE [Concomitant]
     Indication: PAIN
     Route: 048
     Dates: start: 2006
  13. ULTRAM [Concomitant]
     Indication: PAIN
     Route: 048
     Dates: start: 2007

REACTIONS (3)
  - Amnesia [Recovered/Resolved]
  - Vaginal infection [Recovered/Resolved]
  - Hepatic enzyme increased [Recovered/Resolved]
